FAERS Safety Report 8516563-0 (Version None)
Quarter: 2012Q3

REPORT INFORMATION
  Report Type: 
  Country: None (occurrence: None)
  Receive Date: 20120711
  Receipt Date: 20120711
  Transmission Date: 20120928
  Serious: Yes (Life-Threatening)
  Sender: FDA-Public Use
  Company Number: None

PATIENT
  Age: 63 Year
  Sex: Male
  Weight: 103.4201 kg

DRUGS (1)
  1. PROVENGE [Suspect]
     Indication: PROSTATE CANCER
     Dosage: 1 UNIT EVERY OTHER WEEK X IV DRIP
     Route: 041
     Dates: start: 20120702

REACTIONS (2)
  - WHITE BLOOD CELL COUNT INCREASED [None]
  - BODY TEMPERATURE INCREASED [None]
